FAERS Safety Report 16094461 (Version 2)
Quarter: 2019Q1

REPORT INFORMATION
  Report Type: Spontaneous
  Country: US (occurrence: US)
  Receive Date: 20190320
  Receipt Date: 20190328
  Transmission Date: 20190418
  Serious: Yes (Other)
  Sender: FDA-Public Use
  Company Number: US-PFIZER INC-2019113106

PATIENT
  Age: 47 Year
  Sex: Female
  Weight: 71.21 kg

DRUGS (3)
  1. XELJANZ XR [Suspect]
     Active Substance: TOFACITINIB CITRATE
     Indication: PSORIATIC ARTHROPATHY
  2. CIMZIA [Concomitant]
     Active Substance: CERTOLIZUMAB PEGOL
     Dosage: 2 DF, MONTHLY (TWO INJECTIONS IN HER STOMACH ONCE ON A MONTH)
  3. XELJANZ XR [Suspect]
     Active Substance: TOFACITINIB CITRATE
     Indication: OSTEOARTHRITIS
     Dosage: 11 MG, 1X/DAY
     Route: 048
     Dates: start: 20180219

REACTIONS (4)
  - Peripheral swelling [Unknown]
  - Rheumatoid arthritis [Unknown]
  - Pain [Unknown]
  - Crying [Unknown]

NARRATIVE: CASE EVENT DATE: 20190312
